FAERS Safety Report 5889928-3 (Version None)
Quarter: 2008Q3

REPORT INFORMATION
  Report Type: 
  Country: None (occurrence: None)
  Receive Date: 20080919
  Receipt Date: 20080916
  Transmission Date: 20090109
  Serious: Yes (Death, Hospitalization, Other)
  Sender: FDA-Public Use
  Company Number: PHHY2008BR21587

PATIENT
  Age: 94 Year
  Sex: Female

DRUGS (2)
  1. EXFORGE [Suspect]
     Indication: HYPERTENSION
     Dosage: 80 MG VALSARTAN/5 MG AMLODIPINE
     Route: 048
  2. WARFARIN SODIUM [Concomitant]
     Dosage: 1 DF, QD

REACTIONS (10)
  - ANOREXIA [None]
  - ASTHENIA [None]
  - CACHEXIA [None]
  - CONTUSION [None]
  - DEATH [None]
  - DEPRESSED MOOD [None]
  - FACE INJURY [None]
  - FACIAL BONES FRACTURE [None]
  - FALL [None]
  - UPPER LIMB FRACTURE [None]
